FAERS Safety Report 9191143 (Version 1)
Quarter: 2013Q1

REPORT INFORMATION
  Report Type: Spontaneous
  Country: US (occurrence: US)
  Receive Date: 20130326
  Receipt Date: 20130326
  Transmission Date: 20140127
  Serious: Yes (Other)
  Sender: FDA-Public Use
  Company Number: US-BAYER-2013-034552

PATIENT
  Age: 67 Year
  Sex: Male
  Weight: 99.77 kg

DRUGS (6)
  1. ALKA-SELTZER PLUS DAY,ALKA-SELTZER PLUS NIGHT [Suspect]
     Indication: NASOPHARYNGITIS
     Dosage: 2 DF, OTHER FREQUENCY
     Route: 048
     Dates: start: 20130317, end: 20130317
  2. ALKA-SELTZER PLUS DAY,ALKA-SELTZER PLUS NIGHT [Suspect]
     Indication: NASOPHARYNGITIS
     Dosage: 2 DF, OTHER FREQUENCY
     Route: 048
     Dates: start: 20130317, end: 20130317
  3. BAYER ASPIRIN REGIMEN ADULT LOW STRENGTH [Concomitant]
  4. LISINOPRIL [Concomitant]
  5. PRAVASTATIN [Concomitant]
  6. ZYRTEC [Concomitant]

REACTIONS (5)
  - Hallucination [Recovered/Resolved]
  - Unevaluable event [Recovered/Resolved]
  - Drug ineffective [None]
  - Product quality issue [None]
  - Product formulation issue [None]
